FAERS Safety Report 19770731 (Version 2)
Quarter: 2021Q3

REPORT INFORMATION
  Report Type: Spontaneous
  Country: US (occurrence: US)
  Receive Date: 20210831
  Receipt Date: 20210831
  Transmission Date: 20211014
  Serious: Yes (Other)
  Sender: FDA-Public Use
  Company Number: US-FRESENIUS KABI-FK202109199

PATIENT
  Age: 27 Year
  Sex: Male

DRUGS (3)
  1. DEXAMETHASONE INJECTION (MANUFACTURER UNKNOWN) [Suspect]
     Active Substance: DEXAMETHASONE
     Indication: NERVE BLOCK
     Route: 050
  2. BUPIVACAINE (MANUFACTURER UNKNOWN) [Suspect]
     Active Substance: BUPIVACAINE
     Indication: NERVE BLOCK
     Route: 050
  3. LIDOCAINE (MANUFACTURER UNKNOWN) [Suspect]
     Active Substance: LIDOCAINE
     Indication: NERVE BLOCK
     Route: 050

REACTIONS (5)
  - Spinal cord injury [Recovered/Resolved with Sequelae]
  - Product administration error [Recovered/Resolved with Sequelae]
  - Allodynia [Recovering/Resolving]
  - Pain [Recovering/Resolving]
  - Quadriparesis [Recovered/Resolved with Sequelae]
